FAERS Safety Report 10395374 (Version 1)
Quarter: 2014Q3

REPORT INFORMATION
  Report Type: Spontaneous
  Country: FR (occurrence: FR)
  Receive Date: 20140820
  Receipt Date: 20140820
  Transmission Date: 20150326
  Serious: Yes (Life-Threatening, Hospitalization)
  Sender: FDA-Public Use
  Company Number: FR-BAYER-2014-121898

PATIENT
  Age: 73 Year
  Sex: Male

DRUGS (6)
  1. DECAPEPTYL [TRIPTORELIN EMBONATE] [Concomitant]
  2. RILMENIDINE [Concomitant]
     Active Substance: RILMENIDINE
  3. COVERSYL [Concomitant]
     Active Substance: PERINDOPRIL
  4. XOFIGO [Suspect]
     Active Substance: RADIUM RA-223 DICHLORIDE
     Indication: PROSTATE CANCER METASTATIC
     Dosage: 1000 KBQ, ONCE
     Route: 042
     Dates: start: 20140701, end: 20140701
  5. NEBILOX [Concomitant]
     Active Substance: NEBIVOLOL HYDROCHLORIDE
  6. MEDIATENSYL [Concomitant]
     Active Substance: URAPIDIL

REACTIONS (2)
  - Shock haemorrhagic [Recovered/Resolved]
  - Muscle haemorrhage [Recovered/Resolved]

NARRATIVE: CASE EVENT DATE: 20140703
